FAERS Safety Report 7183652-5 (Version None)
Quarter: 2010Q4

REPORT INFORMATION
  Report Type: 
  Country: None (occurrence: None)
  Receive Date: 20101222
  Receipt Date: 20101220
  Transmission Date: 20110411
  Serious: Yes (Other)
  Sender: FDA-Public Use
  Company Number: US-RB-017135-10

PATIENT
  Age: 16 Year
  Sex: Male

DRUGS (1)
  1. MUCINEX DM [Suspect]
     Dosage: CALLER FEELS THAT PATIENT MAY BE ABUSING PRODUCT.
     Route: 048

REACTIONS (2)
  - DRUG ABUSE [None]
  - NO ADVERSE EVENT [None]
